FAERS Safety Report 6433148-0 (Version None)
Quarter: 2009Q4

REPORT INFORMATION
  Report Type: 
  Country: None (occurrence: None)
  Receive Date: 20091109
  Receipt Date: 20091026
  Transmission Date: 20100525
  Serious: Yes (Hospitalization, Other)
  Sender: FDA-Public Use
  Company Number: PHHY2009JP38087

PATIENT
  Age: 43 Year
  Sex: Male

DRUGS (15)
  1. TEGRETOL [Suspect]
     Indication: TRIGEMINAL NEURALGIA
     Dosage: 400 MG DAILY
     Route: 048
     Dates: start: 20090808, end: 20090824
  2. LOXONIN [Concomitant]
     Dosage: 60 MG, PRN
     Route: 048
     Dates: start: 20090824, end: 20090903
  3. ACTOS [Concomitant]
     Indication: DIABETES MELLITUS
     Dosage: 30 MG DAILY
     Route: 048
     Dates: start: 20090716, end: 20090909
  4. MICARDIS [Concomitant]
     Indication: HYPERTENSION
     Dosage: 40 MG DAILY
     Route: 048
     Dates: start: 20090716
  5. SILECE [Concomitant]
     Indication: INSOMNIA
     Dosage: 1 MG, UNK
     Route: 048
     Dates: start: 20090716, end: 20090816
  6. AMARYL [Concomitant]
     Indication: DIABETES MELLITUS
     Dosage: 1 MG DAILY
     Route: 048
     Dates: start: 20090812, end: 20090824
  7. AMARYL [Concomitant]
     Dosage: 3 MG DAILY
     Route: 048
     Dates: start: 20090824, end: 20090909
  8. CRAVIT [Concomitant]
     Indication: PYREXIA
     Dosage: 300 MG, PRN
     Route: 048
     Dates: start: 20090824, end: 20090829
  9. MUCODYNE [Concomitant]
     Dosage: 1500 MG, PRN
     Route: 048
     Dates: start: 20090824, end: 20090903
  10. NICHOLASE [Concomitant]
     Indication: PYREXIA
     Dosage: 30 MG, PRN
     Route: 048
     Dates: start: 20090824, end: 20090903
  11. GENINAX [Concomitant]
     Indication: PYREXIA
     Dosage: 400 MG, UNK
     Route: 048
     Dates: start: 20090829, end: 20090903
  12. ROCEPHIN [Concomitant]
     Indication: INFECTION
     Dosage: 1 G, UNK
     Route: 042
     Dates: start: 20090901, end: 20090903
  13. ASPHAGEN [Concomitant]
     Dosage: 20 ML, UNK
     Route: 042
     Dates: start: 20090902, end: 20090902
  14. AMINOFLUID [Concomitant]
     Dosage: 500 ML, UNK
     Route: 042
     Dates: start: 20090904
  15. TAMIFLU [Concomitant]
     Dosage: UNK
     Route: 048
     Dates: start: 20090830

REACTIONS (19)
  - ALANINE AMINOTRANSFERASE INCREASED [None]
  - ASPARTATE AMINOTRANSFERASE INCREASED [None]
  - BLOOD GLUCOSE INCREASED [None]
  - BLOOD LACTATE DEHYDROGENASE INCREASED [None]
  - DERMATITIS EXFOLIATIVE [None]
  - DRUG ERUPTION [None]
  - DRUG RASH WITH EOSINOPHILIA AND SYSTEMIC SYMPTOMS [None]
  - EOSINOPHIL COUNT INCREASED [None]
  - ERYTHEMA [None]
  - FLUSHING [None]
  - GAMMA-GLUTAMYLTRANSFERASE INCREASED [None]
  - HEPATIC FUNCTION ABNORMAL [None]
  - LYMPHADENOPATHY [None]
  - LYMPHOCYTE MORPHOLOGY ABNORMAL [None]
  - LYMPHOCYTE STIMULATION TEST POSITIVE [None]
  - PIGMENTATION DISORDER [None]
  - PRURITUS [None]
  - PYREXIA [None]
  - RASH [None]
